FAERS Safety Report 21058289 (Version 6)
Quarter: 2022Q4

REPORT INFORMATION
  Report Type: Spontaneous
  Country: VN (occurrence: VN)
  Receive Date: 20220708
  Receipt Date: 20221007
  Transmission Date: 20230113
  Serious: Yes (Other)
  Sender: FDA-Public Use
  Company Number: VN-SA-SAC20220705001970

PATIENT
  Age: 63 Year
  Sex: Female

DRUGS (11)
  1. SOLIQUA 100/33 [Suspect]
     Active Substance: INSULIN GLARGINE\LIXISENATIDE
     Indication: Type 2 diabetes mellitus
     Dosage: UNK UNK, QD (24 DOSE STEPS IN THE MORNING))
     Route: 058
     Dates: start: 20220509, end: 20220610
  2. SPIROMIDE [Concomitant]
     Dosage: 20/50 MG MORNING: HALF TABLET
  3. SAMSCA [Concomitant]
     Active Substance: TOLVAPTAN
     Dosage: 15 MG MORNING, ONE FOURTH OF A TABLET
     Route: 048
  4. LEVOTHYROXINE [Concomitant]
     Active Substance: LEVOTHYROXINE
     Dosage: 100MCG MORNING: 1 TABLET
  5. ACENOCOUMAROL [Concomitant]
     Active Substance: ACENOCOUMAROL
     Dosage: 4 MG MORNING: ONE/FORTH TABLET, EVENING: ONE/FOURT TABLET
  6. CORDARONE [Concomitant]
     Active Substance: AMIODARONE HYDROCHLORIDE
     Indication: Arrhythmia
     Dosage: 200 MG MORNING: HALF TABLET
     Route: 048
  7. ENTEROGERMINA [BACILLUS CLAUSII] [Concomitant]
     Indication: Dyspepsia
     Dosage: 5 ML AFTERNOON: 1 TUBE
     Route: 048
  8. AGIFUROS [Concomitant]
     Dosage: UNK
  9. PANTOPRAZOLE [Concomitant]
     Active Substance: PANTOPRAZOLE
     Dosage: 40 MG MORNING: 1 TABLET
     Route: 048
  10. OLANZAPINE [Concomitant]
     Active Substance: OLANZAPINE
     Indication: Sedation
     Dosage: 40 MG NIGHT: 1 TABLET
     Route: 048
  11. IRBESARTAN [Concomitant]
     Active Substance: IRBESARTAN
     Indication: Hypertension
     Dosage: 150 MG MORNING: 1 TABLET
     Route: 048

REACTIONS (5)
  - Glomerular filtration rate decreased [Recovering/Resolving]
  - Blood glucose increased [Recovering/Resolving]
  - Drug ineffective [Recovering/Resolving]
  - Glycosylated haemoglobin increased [Recovering/Resolving]
  - Off label use [Unknown]

NARRATIVE: CASE EVENT DATE: 20220509
